FAERS Safety Report 6126285-1 (Version None)
Quarter: 2009Q1

REPORT INFORMATION
  Report Type: 
  Country: None (occurrence: None)
  Receive Date: 20090320
  Receipt Date: 20090220
  Transmission Date: 20090719
  Serious: Yes (Hospitalization)
  Sender: FDA-Public Use
  Company Number: CN-ROCHE-622074

PATIENT
  Sex: Male

DRUGS (8)
  1. CAPECITABINE [Suspect]
     Route: 048
     Dates: start: 20090106
  2. CAPECITABINE [Suspect]
     Dosage: DAY 1 - DAY 14
     Route: 048
     Dates: start: 20090202, end: 20090208
  3. OXALIPLATIN [Suspect]
     Route: 042
     Dates: start: 20090106
  4. OXALIPLATIN [Suspect]
     Route: 042
     Dates: start: 20090202, end: 20090202
  5. METOCLOPRAMIDE [Concomitant]
     Route: 065
     Dates: start: 20090202, end: 20090202
  6. TROPISETRON [Concomitant]
     Route: 065
     Dates: start: 20090202, end: 20090202
  7. DEXMETHSONE [Concomitant]
     Route: 065
     Dates: start: 20090202, end: 20090202
  8. DIAZEPAM [Concomitant]
     Route: 065
     Dates: start: 20090202, end: 20090202

REACTIONS (2)
  - CHOLECYSTITIS ACUTE [None]
  - INTESTINAL OBSTRUCTION [None]
